FAERS Safety Report 9641357 (Version 1)
Quarter: 2013Q4

REPORT INFORMATION
  Report Type: Spontaneous
  Country: US (occurrence: None)
  Receive Date: 20131022
  Receipt Date: 20131022
  Transmission Date: 20140711
  Serious: No
  Sender: FDA-Public Use
  Company Number: None

PATIENT
  Age: 77 Year
  Sex: Male

DRUGS (7)
  1. ADVAIR [Suspect]
     Indication: CHRONIC OBSTRUCTIVE PULMONARY DISEASE
     Dosage: 2 PUFFS BID
     Dates: start: 20131003, end: 20131014
  2. CRESTOR [Concomitant]
  3. FINASTERIDE [Concomitant]
  4. AMIODARONE [Concomitant]
  5. METOPROLOL TARTRATE [Concomitant]
  6. TAMSULOSIN [Concomitant]
  7. OMEPRAZOLE [Concomitant]

REACTIONS (4)
  - Stomatitis [None]
  - Glossitis [None]
  - Throat irritation [None]
  - Speech disorder [None]
